FAERS Safety Report 9920861 (Version 1)
Quarter: 2014Q1

REPORT INFORMATION
  Report Type: Report from Study
  Country: FR (occurrence: FR)
  Receive Date: 20140225
  Receipt Date: 20140225
  Transmission Date: 20141002
  Serious: Yes (Hospitalization)
  Sender: FDA-Public Use
  Company Number: FR-ROCHE-1351291

PATIENT
  Sex: Male

DRUGS (17)
  1. RITUXIMAB [Suspect]
     Indication: RHEUMATOID ARTHRITIS
     Dosage: DAY 1
     Route: 065
     Dates: start: 20070326
  2. RITUXIMAB [Suspect]
     Dosage: DAY 15
     Route: 065
     Dates: start: 20070411
  3. RITUXIMAB [Suspect]
     Dosage: DAY 1
     Route: 065
     Dates: start: 20071126
  4. RITUXIMAB [Suspect]
     Dosage: DAY 15
     Route: 065
     Dates: start: 20071212
  5. RITUXIMAB [Suspect]
     Dosage: DAY 1
     Route: 065
     Dates: start: 20080908
  6. RITUXIMAB [Suspect]
     Dosage: DAY 15
     Route: 065
     Dates: start: 20080922
  7. RITUXIMAB [Suspect]
     Dosage: DAY 1
     Route: 065
     Dates: start: 20090808
  8. RITUXIMAB [Suspect]
     Dosage: DAY 15
     Route: 065
     Dates: start: 20090820
  9. RITUXIMAB [Suspect]
     Dosage: DAY 1
     Route: 065
     Dates: start: 20101020
  10. RITUXIMAB [Suspect]
     Dosage: DAY 15
     Route: 065
     Dates: start: 20101104
  11. RITUXIMAB [Suspect]
     Dosage: DAY 1
     Route: 065
     Dates: start: 20120105
  12. RITUXIMAB [Suspect]
     Dosage: DAY 15
     Route: 065
     Dates: start: 20120119
  13. CORTANCYL [Concomitant]
     Route: 065
  14. CORTANCYL [Concomitant]
     Route: 065
  15. CORTANCYL [Concomitant]
     Route: 065
  16. CORTANCYL [Concomitant]
     Route: 065
  17. CORTANCYL [Concomitant]
     Dosage: FOR THE INFUSION.
     Route: 065

REACTIONS (20)
  - Sleep apnoea syndrome [Not Recovered/Not Resolved]
  - Infusion related reaction [Recovered/Resolved]
  - Rash [Recovered/Resolved]
  - Infusion site reaction [Recovered/Resolved]
  - Bronchitis [Recovered/Resolved]
  - Painful respiration [Unknown]
  - Cough [Recovered/Resolved]
  - Nasal congestion [Recovering/Resolving]
  - Headache [Not Recovered/Not Resolved]
  - Spinal pain [Recovered/Resolved]
  - Spinal pain [Not Recovered/Not Resolved]
  - Lymphopenia [Not Recovered/Not Resolved]
  - Intervertebral disc degeneration [Not Recovered/Not Resolved]
  - Narrow anterior chamber angle [Unknown]
  - Blood immunoglobulin G decreased [Recovered/Resolved]
  - Oedema peripheral [Not Recovered/Not Resolved]
  - Neck pain [Unknown]
  - Pyrexia [Recovered/Resolved]
  - Erythema [Not Recovered/Not Resolved]
  - Eczema [Recovered/Resolved]
